FAERS Safety Report 9769320 (Version 1)
Quarter: 2013Q4

REPORT INFORMATION
  Report Type: Spontaneous
  Country: US (occurrence: None)
  Receive Date: 20131129
  Receipt Date: 20131129
  Transmission Date: 20140711
  Serious: Yes (Hospitalization)
  Sender: FDA-Public Use
  Company Number: GR 13-032

PATIENT
  Age: 54 Year
  Sex: Male

DRUGS (1)
  1. ALLERGENIC EXTRACTS [Suspect]
     Indication: ANTIALLERGIC THERAPY

REACTIONS (5)
  - Cough [None]
  - Skin warm [None]
  - Presyncope [None]
  - Hypotension [None]
  - Pulse absent [None]
